FAERS Safety Report 12280901 (Version 1)
Quarter: 2016Q2

REPORT INFORMATION
  Report Type: Spontaneous
  Country: US (occurrence: None)
  Receive Date: 20160418
  Receipt Date: 20160418
  Transmission Date: 20160815
  Serious: Yes (Life-Threatening, Hospitalization, Other)
  Sender: FDA-Public Use
  Company Number: None

PATIENT
  Age: 20 Year
  Sex: Male
  Weight: 71.67 kg

DRUGS (3)
  1. VENTOLIN HFA [Suspect]
     Active Substance: ALBUTEROL SULFATE
  2. FLUOXETINE [Concomitant]
     Active Substance: FLUOXETINE HYDROCHLORIDE
  3. ALLEGRA [Concomitant]
     Active Substance: FEXOFENADINE HYDROCHLORIDE

REACTIONS (12)
  - Foreign body [None]
  - Rectal haemorrhage [None]
  - Panic reaction [None]
  - Device breakage [None]
  - Dizziness [None]
  - Oesophageal rupture [None]
  - Constipation [None]
  - Tracheal obstruction [None]
  - Gastrointestinal pain [None]
  - Oropharyngeal pain [None]
  - Chest pain [None]
  - Lymphadenopathy [None]

NARRATIVE: CASE EVENT DATE: 20160411
